FAERS Safety Report 7353005-5 (Version None)
Quarter: 2011Q1

REPORT INFORMATION
  Report Type: 
  Country: None (occurrence: None)
  Receive Date: 20110315
  Receipt Date: 20101119
  Transmission Date: 20110831
  Serious: Yes (Hospitalization)
  Sender: FDA-Public Use
  Company Number: A0897096A

PATIENT
  Age: 46 Year

DRUGS (1)
  1. AVANDIA [Suspect]
     Dosage: 4MG PER DAY
     Route: 048
     Dates: start: 20010809, end: 20010909

REACTIONS (5)
  - ARTERIOSCLEROSIS [None]
  - STENT PLACEMENT [None]
  - CATHETERISATION CARDIAC [None]
  - PERCUTANEOUS CORONARY INTERVENTION [None]
  - CARDIOVASCULAR DISORDER [None]
